FAERS Safety Report 8892338 (Version 1)
Quarter: 2012Q4

REPORT INFORMATION
  Report Type: 
  Country: US (occurrence: US)
  Receive Date: 20121107
  Receipt Date: 20121107
  Transmission Date: 20130627
  Serious: No
  Sender: FDA-Public Use
  Company Number: US-AMGEN-USASP2011061013

PATIENT
  Age: 52 Year
  Sex: Female

DRUGS (10)
  1. ENBREL [Suspect]
     Indication: PRODUCT USED FOR UNKNOWN INDICATION
     Dosage: 50 mg, qwk
  2. KLOR-CON [Concomitant]
  3. FOLIC ACID [Concomitant]
     Dosage: 1 mg, UNK
  4. VITAMIN D /00107901/ [Concomitant]
     Dosage: 1000 IU, UNK
  5. ASPIRIN [Concomitant]
     Dosage: 81 mg, UNK
  6. IRON [Concomitant]
     Dosage: 18 mg, UNK
  7. HYDROCHLOROTH [Concomitant]
     Dosage: 12.5 mg, UNK
  8. MOBIC [Concomitant]
     Dosage: 7.5 mg, UNK
  9. METHOTREXATE [Concomitant]
  10. BYSTOLIC [Concomitant]
     Dosage: 10 mg, UNK

REACTIONS (3)
  - Nausea [Unknown]
  - Abdominal pain [Unknown]
  - Diarrhoea [Unknown]
